FAERS Safety Report 19259391 (Version 3)
Quarter: 2021Q4

REPORT INFORMATION
  Report Type: Spontaneous
  Country: DE (occurrence: DE)
  Receive Date: 20210514
  Receipt Date: 20211018
  Transmission Date: 20220303
  Serious: Yes (Other)
  Sender: FDA-Public Use
  Company Number: None

PATIENT
  Age: 28 Year
  Sex: Female
  Weight: 75 kg

DRUGS (5)
  1. GADOBUTROL [Suspect]
     Active Substance: GADOBUTROL
     Indication: Magnetic resonance imaging
     Dosage: 7,5 ML
     Route: 042
     Dates: start: 20210401, end: 20210401
  2. GADOBUTROL [Suspect]
     Active Substance: GADOBUTROL
     Indication: Thrombosis
  3. GADOBUTROL [Suspect]
     Active Substance: GADOBUTROL
     Indication: Headache
  4. FLUTICASONE PROPIONATE\SALMETEROL XINAFOATE [Concomitant]
     Active Substance: FLUTICASONE PROPIONATE\SALMETEROL XINAFOATE
     Indication: Asthma
     Dosage: BID, 1-0-1
  5. ACETAMINOPHEN [Concomitant]
     Active Substance: ACETAMINOPHEN
     Indication: Headache
     Dosage: 1000 MG, SHORT INFUSION (24:00 TO 6:00 H)
     Route: 042
     Dates: start: 20210331, end: 20210401

REACTIONS (12)
  - Sudden hearing loss [Recovered/Resolved with Sequelae]
  - Tension headache [Unknown]
  - Tinnitus [Recovered/Resolved with Sequelae]
  - Visual impairment [Unknown]
  - Somnolence [Recovered/Resolved with Sequelae]
  - Feeling abnormal [Recovered/Resolved with Sequelae]
  - Muscle twitching [Unknown]
  - Dizziness [Recovered/Resolved with Sequelae]
  - Intention tremor [Unknown]
  - Bone disorder [Unknown]
  - Frequent bowel movements [Unknown]
  - Tendon pain [Unknown]

NARRATIVE: CASE EVENT DATE: 20210401
